FAERS Safety Report 4336641-X (Version None)
Quarter: 2004Q2

REPORT INFORMATION
  Report Type: 
  Country: None (occurrence: None)
  Receive Date: 20040408
  Receipt Date: 20040402
  Transmission Date: 20050107
  Serious: Yes (Other)
  Sender: FDA-Public Use
  Company Number: 2004207180US

PATIENT
  Age: 62 Year
  Sex: Female

DRUGS (3)
  1. PROVERA [Suspect]
     Dosage: ORAL
     Route: 048
     Dates: start: 19990101, end: 19950901
  2. PREMARIN [Suspect]
     Dosage: ORAL
     Route: 048
     Dates: start: 19910101, end: 19950901
  3. PREMPRO [Suspect]
     Dosage: ORAL
     Route: 048
     Dates: start: 19950901, end: 20020201

REACTIONS (1)
  - BREAST CANCER [None]
